FAERS Safety Report 14099037 (Version 2)
Quarter: 2018Q4

REPORT INFORMATION
  Report Type: Spontaneous
  Country: US (occurrence: US)
  Receive Date: 20171017
  Receipt Date: 20181010
  Transmission Date: 20190204
  Serious: Yes (Hospitalization)
  Sender: FDA-Public Use
  Company Number: US-BIOCOMPATIBLES UK LTD-2017BTG01379

PATIENT
  Age: 13 Year
  Sex: Male

DRUGS (7)
  1. CROFAB [Suspect]
     Active Substance: CROTALIDAE POLYVALENT IMMUNE FAB (OVINE)
     Dosage: 2 VIALS, UNK
     Route: 065
     Dates: start: 20170924
  2. CROFAB [Suspect]
     Active Substance: CROTALIDAE POLYVALENT IMMUNE FAB (OVINE)
     Dosage: 2 VIALS, UNK
     Route: 065
     Dates: start: 20170925
  3. CROFAB [Suspect]
     Active Substance: CROTALIDAE POLYVALENT IMMUNE FAB (OVINE)
     Dosage: 2 VIALS, UNK
     Route: 065
     Dates: start: 20170924
  4. CROFAB [Suspect]
     Active Substance: CROTALIDAE POLYVALENT IMMUNE FAB (OVINE)
     Dosage: 2 VIALS, UNK
     Route: 065
     Dates: start: 20170930
  5. CROFAB [Suspect]
     Active Substance: CROTALIDAE POLYVALENT IMMUNE FAB (OVINE)
     Dosage: 4 VIALS, UNK
     Route: 065
     Dates: start: 20171001
  6. CROFAB [Suspect]
     Active Substance: CROTALIDAE POLYVALENT IMMUNE FAB (OVINE)
     Indication: SNAKE BITE
     Dosage: 6 VIALS, UNK
     Route: 042
     Dates: start: 20170924
  7. CROFAB [Suspect]
     Active Substance: CROTALIDAE POLYVALENT IMMUNE FAB (OVINE)
     Dosage: 4 VIALS, UNK
     Route: 065
     Dates: start: 20170924

REACTIONS (5)
  - Intercepted product preparation error [Unknown]
  - Thrombocytopenia [Recovering/Resolving]
  - Product preparation issue [Unknown]
  - Therapy change [Unknown]
  - Product quality issue [Unknown]

NARRATIVE: CASE EVENT DATE: 20170924
